FAERS Safety Report 10608154 (Version 1)
Quarter: 2014Q4

REPORT INFORMATION
  Report Type: Spontaneous
  Country: RO (occurrence: RO)
  Receive Date: 20141125
  Receipt Date: 20141125
  Transmission Date: 20150529
  Serious: Yes (Death, Life-Threatening, Hospitalization, Disabling, Other)
  Sender: FDA-Public Use
  Company Number: RO-ABBVIE-14K-135-1311623-00

PATIENT
  Age: 52 Year
  Sex: Female
  Weight: 68 kg

DRUGS (2)
  1. METOTREXAT [Suspect]
     Active Substance: METHOTREXATE SODIUM
     Indication: RHEUMATOID ARTHRITIS
     Route: 048
  2. HUMIRA [Suspect]
     Active Substance: ADALIMUMAB
     Indication: RHEUMATOID ARTHRITIS
     Route: 058
     Dates: start: 201110, end: 201410

REACTIONS (6)
  - Headache [Unknown]
  - Unevaluable event [Unknown]
  - Bone tuberculosis [Fatal]
  - Muscle contractions involuntary [Unknown]
  - Cardiac arrest [Unknown]
  - Intervertebral discitis [Fatal]

NARRATIVE: CASE EVENT DATE: 20141111
